FAERS Safety Report 19149330 (Version 2)
Quarter: 2021Q2

REPORT INFORMATION
  Report Type: Report from Study
  Country: CA (occurrence: CA)
  Receive Date: 20210416
  Receipt Date: 20210616
  Transmission Date: 20210717
  Serious: Yes (Other)
  Sender: FDA-Public Use
  Company Number: CA-TAKEDA-2020TUS013068

PATIENT
  Age: 36 Year
  Sex: Female

DRUGS (4)
  1. ASACOL [Concomitant]
     Active Substance: MESALAMINE
     Dosage: UNK
     Dates: start: 20190307
  2. VEDOLIZUMAB [Suspect]
     Active Substance: VEDOLIZUMAB
     Indication: COLITIS ULCERATIVE
     Dosage: 300 MILLIGRAM
     Route: 042
     Dates: start: 20190806
  3. VEDOLIZUMAB [Suspect]
     Active Substance: VEDOLIZUMAB
     Dosage: 300 MILLIGRAM
     Route: 042
  4. PREDNISONE. [Concomitant]
     Active Substance: PREDNISONE
     Indication: DRUG DEPENDENCE
     Dosage: 20 MILLIGRAM, QD
     Route: 048
     Dates: start: 20190307

REACTIONS (10)
  - Colitis ulcerative [Not Recovered/Not Resolved]
  - Bronchospasm [Unknown]
  - Chest discomfort [Unknown]
  - Abdominal pain [Unknown]
  - Thyroid disorder [Unknown]
  - Abdominal discomfort [Unknown]
  - Dizziness [Unknown]
  - Dyspnoea [Unknown]
  - Painful respiration [Unknown]
  - Vaginal haemorrhage [Unknown]
